FAERS Safety Report 16428991 (Version 7)
Quarter: 2019Q3

REPORT INFORMATION
  Report Type: Spontaneous
  Country: JP (occurrence: JP)
  Receive Date: 20190613
  Receipt Date: 20190916
  Transmission Date: 20191004
  Serious: Yes (Death, Hospitalization, Disabling, Other)
  Sender: FDA-Public Use
  Company Number: JP-009507513-1906JPN000632J

PATIENT
  Age: 79 Year
  Sex: Male
  Weight: 45 kg

DRUGS (3)
  1. KEYTRUDA [Suspect]
     Active Substance: PEMBROLIZUMAB
     Indication: NON-SMALL CELL LUNG CANCER
     Dosage: 200 MILLIGRAM, EVERY 4 WEEKS
     Route: 041
     Dates: start: 20190528, end: 20190528
  2. ABRAXANE [Suspect]
     Active Substance: PACLITAXEL
     Indication: NON-SMALL CELL LUNG CANCER
     Dosage: 135 MILLIGRAM, EVERY 4 WEEKS
     Route: 041
     Dates: start: 20190528, end: 20190528
  3. PEMETREXED DISODIUM [Concomitant]
     Active Substance: PEMETREXED DISODIUM
     Indication: NON-SMALL CELL LUNG CANCER
     Dosage: UNK
     Route: 041
     Dates: start: 20190528

REACTIONS (14)
  - Septic shock [Unknown]
  - Hepatitis [Unknown]
  - Pulmonary hypertension [Unknown]
  - Hypothyroidism [Unknown]
  - Pancreatitis [Fatal]
  - Drug-induced liver injury [Recovered/Resolved]
  - Infusion related reaction [Recovered/Resolved]
  - Hyperuricaemia [Unknown]
  - Pneumocystis jirovecii pneumonia [Unknown]
  - Lung disorder [Recovered/Resolved]
  - Adrenal insufficiency [Recovering/Resolving]
  - Hypertension [Unknown]
  - Hypoxia [Unknown]
  - Pneumonia bacterial [Unknown]

NARRATIVE: CASE EVENT DATE: 20190528
